FAERS Safety Report 8884236 (Version 1)
Quarter: 2012Q4

REPORT INFORMATION
  Report Type: 
  Country: US (occurrence: US)
  Receive Date: 20121104
  Receipt Date: 20121104
  Transmission Date: 20130627
  Serious: Yes (Hospitalization)
  Sender: FDA-Public Use
  Company Number: US-BAYER-2012-113119

PATIENT
  Age: 80 Year
  Sex: Male

DRUGS (15)
  1. BAYER GENUINE ASPIRIN ORIGINAL STRENGTH [Suspect]
  2. SAXAGLIPTIN [Suspect]
     Indication: TYPE II DIABETES MELLITUS
     Dosage: UNK
     Dates: start: 20120727
  3. AMARYL [Suspect]
     Indication: TYPE II DIABETES MELLITUS
     Dosage: Daily dose 8mg
  4. LANTUS [Suspect]
     Indication: TYPE II DIABETES MELLITUS
     Dosage: Daily dose 35IU
  5. PLACEBO [Suspect]
     Indication: TYPE II DIABETES MELLITUS
     Dosage: UNK
     Dates: start: 20100727
  6. COUMADIN [Suspect]
     Dosage: UNK
     Dates: start: 20120621
  7. LOVENOX [Suspect]
     Dosage: UNK
     Dates: start: 20120621
  8. VERAPAMIL [Concomitant]
  9. DILTIAZEM [Concomitant]
  10. ZOSYN [Concomitant]
     Dosage: UNK
     Dates: start: 20120621
  11. VANCOMYCIN [Concomitant]
     Dosage: UNK
     Dates: start: 20120621
  12. HYDROCODONE [Concomitant]
     Dosage: UNK
     Dates: start: 20120621
  13. IBUPROFEN [Concomitant]
     Dosage: UNK
     Dates: start: 20120621
  14. AUGMENTIN [Concomitant]
     Dosage: UNK
     Dates: start: 20120621
  15. CLAVULANIC ACID [Concomitant]
     Dosage: UNK
     Dates: start: 20120621

REACTIONS (6)
  - Haemorrhage [None]
  - Haematochezia [None]
  - Hypovolaemia [None]
  - Hypotension [None]
  - Haemoglobin decreased [None]
  - Blood potassium increased [None]
